FAERS Safety Report 6163683-4 (Version None)
Quarter: 2009Q2

REPORT INFORMATION
  Report Type: 
  Country: None (occurrence: None)
  Receive Date: 20090422
  Receipt Date: 20090408
  Transmission Date: 20091009
  Serious: Yes (Congenital Anomaly)
  Sender: FDA-Public Use
  Company Number: ZA-ROCHE-620324

PATIENT
  Weight: 66 kg

DRUGS (1)
  1. ROACCUTANE [Suspect]
     Indication: ACNE
     Route: 048
     Dates: start: 19980101, end: 19980101

REACTIONS (2)
  - TRISOMY 13 [None]
  - TRISOMY 18 [None]
